FAERS Safety Report 14195477 (Version 4)
Quarter: 2018Q1

REPORT INFORMATION
  Report Type: Spontaneous
  Country: JP (occurrence: JP)
  Receive Date: 20171116
  Receipt Date: 20180126
  Transmission Date: 20180508
  Serious: Yes (Hospitalization, Other)
  Sender: FDA-Public Use
  Company Number: JP-GLAXOSMITHKLINE-JP2017JPN173815

PATIENT
  Age: 16 Year
  Sex: Female
  Weight: 54 kg

DRUGS (9)
  1. LAMICTAL [Suspect]
     Active Substance: LAMOTRIGINE
     Indication: JUVENILE MYOCLONIC EPILEPSY
     Dosage: 25 MG, QOD
     Route: 048
     Dates: start: 20140827, end: 20140918
  2. LAMICTAL [Suspect]
     Active Substance: LAMOTRIGINE
     Dosage: 35 MG, BID
     Route: 048
     Dates: start: 20140925, end: 20141006
  3. LAMICTAL [Suspect]
     Active Substance: LAMOTRIGINE
     Dosage: 50 MG, BID
     Route: 048
     Dates: start: 20141007, end: 20141019
  4. LAMICTAL [Suspect]
     Active Substance: LAMOTRIGINE
     Dosage: 75 MG, BID
     Route: 048
     Dates: start: 20141110, end: 20141123
  5. LAMICTAL [Suspect]
     Active Substance: LAMOTRIGINE
     Dosage: 25 MG, QD
     Route: 048
     Dates: start: 20140919, end: 20140924
  6. VALPROATE SODIUM. [Concomitant]
     Active Substance: VALPROATE SODIUM
     Dosage: UNK
     Dates: end: 20141226
  7. LAMICTAL [Suspect]
     Active Substance: LAMOTRIGINE
     Dosage: 60 MG, BID
     Route: 048
     Dates: start: 20141020, end: 20141109
  8. VALPROATE SODIUM. [Concomitant]
     Active Substance: VALPROATE SODIUM
     Dosage: 200 MG, 1D
     Dates: start: 20150715
  9. LAMICTAL [Suspect]
     Active Substance: LAMOTRIGINE
     Dosage: 100 MG, BID
     Route: 048
     Dates: start: 20141124

REACTIONS (17)
  - Dysfunctional uterine bleeding [Recovered/Resolved]
  - Gaze palsy [Recovering/Resolving]
  - Metrorrhagia [Recovered/Resolved]
  - Menorrhagia [Recovered/Resolved]
  - Anaemia [Recovering/Resolving]
  - Dizziness [Recovering/Resolving]
  - Loss of consciousness [Unknown]
  - Cyanosis [Recovering/Resolving]
  - Muscle twitching [Unknown]
  - Stomatitis [Unknown]
  - Genital haemorrhage [Recovered/Resolved]
  - Drug titration error [Unknown]
  - Generalised tonic-clonic seizure [Recovered/Resolved]
  - Feeling abnormal [Recovering/Resolving]
  - Pallor [Recovering/Resolving]
  - Myoclonus [Recovered/Resolved]
  - Headache [Recovering/Resolving]

NARRATIVE: CASE EVENT DATE: 201505
